FAERS Safety Report 6249648-2 (Version None)
Quarter: 2009Q2

REPORT INFORMATION
  Report Type: 
  Country: None (occurrence: None)
  Receive Date: 20090629
  Receipt Date: 20090616
  Transmission Date: 20091009
  Serious: Yes (Hospitalization, Other)
  Sender: FDA-Public Use
  Company Number: ES-ELI_LILLY_AND_COMPANY-ES200906002018

PATIENT
  Age: 89 Year
  Sex: Female

DRUGS (4)
  1. FORTEO [Suspect]
     Indication: OSTEOPOROSIS
     Dosage: 20 UG, UNKNOWN
     Route: 058
     Dates: start: 20081001, end: 20090603
  2. CELEBREX [Concomitant]
     Indication: OSTEOARTHRITIS
  3. DURAGESIC-100 [Concomitant]
  4. ORFIDAL [Concomitant]

REACTIONS (4)
  - CEREBRAL HAEMORRHAGE [None]
  - DEPRESSED LEVEL OF CONSCIOUSNESS [None]
  - HYDROCEPHALUS [None]
  - MYOCARDIAL ISCHAEMIA [None]
